FAERS Safety Report 7389465-3 (Version None)
Quarter: 2011Q2

REPORT INFORMATION
  Report Type: 
  Country: None (occurrence: None)
  Receive Date: 20110401
  Receipt Date: 20110330
  Transmission Date: 20111010
  Serious: Yes (Death)
  Sender: FDA-Public Use
  Company Number: US-MEDIMMUNE-MEDI-0012981

PATIENT
  Sex: Male
  Weight: 3.178 kg

DRUGS (1)
  1. SYNAGIS [Suspect]
     Dates: start: 20110121, end: 20110121

REACTIONS (1)
  - PNEUMONIA RESPIRATORY SYNCYTIAL VIRAL [None]
